FAERS Safety Report 13185305 (Version 1)
Quarter: 2017Q1

REPORT INFORMATION
  Report Type: Report from Study
  Country: AR (occurrence: AR)
  Receive Date: 20170203
  Receipt Date: 20170203
  Transmission Date: 20170428
  Serious: Yes (Other)
  Sender: FDA-Public Use
  Company Number: AR-BRISTOL-MYERS SQUIBB COMPANY-BMS-2017-006527

PATIENT
  Age: 75 Year
  Sex: Female

DRUGS (3)
  1. DACLATASVIR DIHYDROCHLORIDE [Suspect]
     Active Substance: DACLATASVIR DIHYDROCHLORIDE
     Indication: HEPATITIS C
     Dosage: DAILY
     Route: 065
     Dates: start: 20161124
  2. SOFOSBUVIR [Suspect]
     Active Substance: SOFOSBUVIR
     Indication: HEPATITIS C
     Route: 065
  3. RIBAVIRIN. [Suspect]
     Active Substance: RIBAVIRIN
     Indication: HEPATITIS C
     Route: 065

REACTIONS (11)
  - Discomfort [Not Recovered/Not Resolved]
  - Bradycardia [Unknown]
  - Dysphonia [Unknown]
  - Cough [Unknown]
  - Feeling abnormal [Unknown]
  - Influenza [Unknown]
  - Chills [Unknown]
  - Feeling hot [Unknown]
  - Peripheral swelling [Unknown]
  - Tachycardia [Unknown]
  - Secretion discharge [Unknown]

NARRATIVE: CASE EVENT DATE: 20161203
